FAERS Safety Report 20737618 (Version 2)
Quarter: 2022Q2

REPORT INFORMATION
  Report Type: Spontaneous
  Country: US (occurrence: None)
  Receive Date: 20220422
  Receipt Date: 20220427
  Transmission Date: 20220721
  Serious: Yes (Other)
  Sender: FDA-Public Use
  Company Number: US-ROCHE-3075900

PATIENT
  Age: 82 Year
  Sex: Female

DRUGS (1)
  1. VABYSMO [Suspect]
     Active Substance: FARICIMAB-SVOA
     Indication: Neovascular age-related macular degeneration
     Route: 065
     Dates: start: 20220406, end: 20220406

REACTIONS (2)
  - Vitritis [Not Recovered/Not Resolved]
  - Vision blurred [Not Recovered/Not Resolved]

NARRATIVE: CASE EVENT DATE: 20220406
